FAERS Safety Report 14587983 (Version 2)
Quarter: 2018Q2

REPORT INFORMATION
  Report Type: Report from Study
  Country: AU (occurrence: AU)
  Receive Date: 20180301
  Receipt Date: 20180409
  Transmission Date: 20180711
  Serious: Yes (Other)
  Sender: FDA-Public Use
  Company Number: AU-MYLANLABS-2017M1059721

PATIENT
  Age: 44 Year
  Sex: Female
  Weight: 74 kg

DRUGS (1)
  1. CLOZARIL [Suspect]
     Active Substance: CLOZAPINE
     Indication: SCHIZOPHRENIA
     Dosage: 375 MG, UNK
     Route: 048
     Dates: start: 19990312

REACTIONS (13)
  - Thalassaemia [Unknown]
  - Antipsychotic drug level increased [Unknown]
  - Red blood cell microcytes [Recovering/Resolving]
  - Breast abscess [Unknown]
  - Mean cell volume decreased [Recovering/Resolving]
  - Glycosylated haemoglobin increased [Unknown]
  - Mean cell haemoglobin decreased [Not Recovered/Not Resolved]
  - Blood glucose increased [Unknown]
  - Red blood cell count increased [Recovering/Resolving]
  - Anisocytosis [Unknown]
  - Constipation [Unknown]
  - Salivary hypersecretion [Unknown]
  - Red blood cell hypochromic morphology present [Unknown]

NARRATIVE: CASE EVENT DATE: 2017
